FAERS Safety Report 5484855-8 (Version None)
Quarter: 2007Q4

REPORT INFORMATION
  Report Type: 
  Country: None (occurrence: None)
  Receive Date: 20071010
  Receipt Date: 20070921
  Transmission Date: 20080405
  Serious: Yes (Disabling)
  Sender: FDA-Public Use
  Company Number: 2007RR-10288

PATIENT
  Age: 67 Year
  Sex: Female
  Weight: 94.8 kg

DRUGS (7)
  1. SIMVASTATIN [Suspect]
     Indication: LIPIDS INCREASED
     Dosage: 40 MG, ORAL; 50 MG, ORAL
     Route: 048
     Dates: end: 20070402
  2. SIMVASTATIN [Suspect]
     Indication: LIPIDS INCREASED
     Dosage: 40 MG, ORAL; 50 MG, ORAL
     Route: 048
     Dates: start: 20070403, end: 20070420
  3. SIMVASTATIN [Suspect]
     Indication: LIPIDS INCREASED
     Dosage: 40 MG, ORAL; 50 MG, ORAL
     Route: 048
     Dates: start: 20070422, end: 20070423
  4. DISPERSIBLE ASPIRIN   BP (ASPIRIN) [Concomitant]
  5. COMBIVENT          (IPRATROPIUM BROMIDE; SALBUTAMOL SULPHATE) [Concomitant]
  6. RAMIPRIL [Concomitant]
  7. RIMONABANT              (RIMONABANT) [Concomitant]

REACTIONS (6)
  - BLOOD PRESSURE INCREASED [None]
  - CEREBROVASCULAR ACCIDENT [None]
  - EMOTIONAL DISTRESS [None]
  - FALL [None]
  - HEADACHE [None]
  - SYNCOPE [None]
